FAERS Safety Report 7367314-7 (Version None)
Quarter: 2011Q1

REPORT INFORMATION
  Report Type: 
  Country: None (occurrence: None)
  Receive Date: 20110322
  Receipt Date: 20100116
  Transmission Date: 20110831
  Serious: Yes (Death, Hospitalization, Other)
  Sender: FDA-Public Use
  Company Number: US-BAYER-201011423NA

PATIENT
  Sex: Male
  Weight: 90.703 kg

DRUGS (20)
  1. LOPID [Concomitant]
     Dosage: 600 MG, QD
     Route: 048
  2. VERSED [Concomitant]
     Dosage: 2 MG, UNK
     Route: 042
     Dates: start: 20030905
  3. AMICAR [Concomitant]
     Dosage: 25 MG/KG/HR
     Route: 042
     Dates: start: 20030905
  4. LASIX [Concomitant]
     Dosage: 40 MG, UNK
     Route: 042
     Dates: start: 20030905
  5. PROTONIX [Concomitant]
     Dosage: 40 MG, QD
     Route: 048
  6. COUMADIN [Concomitant]
     Dosage: 5 MG, QOD
  7. NEO-SYNEPHRINOL [Concomitant]
     Dosage: 0.4 MG, UNK
     Route: 042
     Dates: start: 20030905
  8. TRASYLOL [Suspect]
     Indication: CORONARY ARTERY BYPASS
     Dosage: UNK
     Dates: start: 20030905, end: 20030905
  9. COUMADIN [Concomitant]
     Dosage: 2.5 MG, QOD
     Route: 048
  10. METOPROLOL [Concomitant]
     Dosage: UNK
     Route: 042
     Dates: start: 20030905
  11. OPTIRAY 350 [Concomitant]
     Dosage: 120 ML, UNK
     Dates: start: 20030904
  12. AMIODARONE HCL [Concomitant]
     Dosage: 20 MG, BID
     Route: 048
  13. MORPHINE [Concomitant]
     Dosage: 10 MG, UNK
     Route: 042
     Dates: start: 20030905
  14. LABETALOL [Concomitant]
     Dosage: 200 MG, BID
     Route: 048
  15. NITROGLYCERIN [Concomitant]
     Dosage: 25 MG, UNK
     Route: 042
     Dates: start: 20030905
  16. PRAVACHOL [Concomitant]
     Dosage: 20 MG, QD
     Route: 048
  17. LASIX [Concomitant]
     Dosage: 80 MG, QD
     Route: 048
  18. EPINEPHRINE [Concomitant]
     Dosage: 0.5 MG, UNK
     Route: 042
     Dates: start: 20030905
  19. ATROPINE [Concomitant]
     Dosage: UNK
     Route: 042
     Dates: start: 20030905
  20. HEPARIN [Concomitant]
     Dosage: 30000 U, UNK
     Route: 042
     Dates: start: 20030905

REACTIONS (14)
  - PAIN [None]
  - RENAL FAILURE [None]
  - ANHEDONIA [None]
  - RENAL INJURY [None]
  - ANXIETY [None]
  - DEATH [None]
  - RENAL IMPAIRMENT [None]
  - CARDIAC DISORDER [None]
  - INJURY [None]
  - ORGAN FAILURE [None]
  - CEREBROVASCULAR ACCIDENT [None]
  - UNEVALUABLE EVENT [None]
  - FEAR [None]
  - DEPRESSION [None]
